FAERS Safety Report 17466076 (Version 4)
Quarter: 2021Q1

REPORT INFORMATION
  Report Type: Spontaneous
  Country: US (occurrence: US)
  Receive Date: 20200227
  Receipt Date: 20210315
  Transmission Date: 20210419
  Serious: Yes (Other)
  Sender: FDA-Public Use
  Company Number: US-GLAXOSMITHKLINE-US2020GSK035334

PATIENT
  Sex: Female

DRUGS (2)
  1. PREVACID 24 HR [Suspect]
     Active Substance: LANSOPRAZOLE
     Indication: GASTROOESOPHAGEAL REFLUX DISEASE
     Dosage: UNKNOWN, UNKNOWN
     Route: 048
     Dates: start: 2009, end: 2013
  2. PRILOSEC [Suspect]
     Active Substance: OMEPRAZOLE MAGNESIUM
     Indication: GASTROOESOPHAGEAL REFLUX DISEASE
     Dosage: UNKNOWN, UNKNOWN
     Route: 065
     Dates: start: 2003, end: 2013

REACTIONS (7)
  - Chronic kidney disease [Not Recovered/Not Resolved]
  - Nephropathy [Unknown]
  - Acute kidney injury [Not Recovered/Not Resolved]
  - Dialysis [Not Recovered/Not Resolved]
  - Renal failure [Unknown]
  - Hypertensive nephropathy [Unknown]
  - End stage renal disease [Not Recovered/Not Resolved]

NARRATIVE: CASE EVENT DATE: 2013
